FAERS Safety Report 5619461-5 (Version None)
Quarter: 2008Q1

REPORT INFORMATION
  Report Type: 
  Country: None (occurrence: None)
  Receive Date: 20080109
  Receipt Date: 20070604
  Transmission Date: 20080703
  Serious: Yes (Hospitalization, Other)
  Sender: FDA-Public Use
  Company Number: WAES 0706USA00642

PATIENT
  Age: 77 Year
  Sex: Female
  Weight: 66.2252 kg

DRUGS (6)
  1. ZETIA [Suspect]
     Indication: DYSLIPIDAEMIA
     Dosage: 10 MG/DAILY/PO
     Route: 048
     Dates: start: 20070101, end: 20070501
  2. FOSAMAX [Concomitant]
  3. LEVOXYL [Concomitant]
  4. TOPROL-XL [Concomitant]
  5. ASPIRIN [Concomitant]
  6. LISINOPRIL [Concomitant]

REACTIONS (1)
  - PANCREATITIS ACUTE [None]
